FAERS Safety Report 9516003 (Version 1)
Quarter: 2013Q3

REPORT INFORMATION
  Report Type: Spontaneous
  Country: US (occurrence: US)
  Receive Date: 20130911
  Receipt Date: 20130911
  Transmission Date: 20140515
  Serious: No
  Sender: FDA-Public Use
  Company Number: US-JNJFOC-20130904549

PATIENT
  Age: 46 Year
  Sex: Male

DRUGS (3)
  1. INVEGA [Suspect]
     Indication: BIPOLAR I DISORDER
     Route: 048
  2. GEODON [Suspect]
     Indication: BIPOLAR I DISORDER
     Route: 065
  3. ZYPREXA [Suspect]
     Indication: BIPOLAR I DISORDER
     Route: 065

REACTIONS (2)
  - Drug ineffective [Not Recovered/Not Resolved]
  - Somnolence [Unknown]
